FAERS Safety Report 11365164 (Version 2)
Quarter: 2015Q3

REPORT INFORMATION
  Report Type: Spontaneous
  Country: BR (occurrence: BR)
  Receive Date: 20150811
  Receipt Date: 20150825
  Transmission Date: 20151125
  Serious: Yes (Other)
  Sender: FDA-Public Use
  Company Number: PHHY2015BR096924

PATIENT
  Age: 89 Year
  Sex: Female
  Weight: 60 kg

DRUGS (2)
  1. EXELON PATCH [Suspect]
     Active Substance: RIVASTIGMINE
     Indication: DEPRESSION
     Dosage: 2 DF (TWO PATCHES OF 4.6 MG), QD
     Route: 062
     Dates: start: 20150801
  2. EXELON PATCH [Suspect]
     Active Substance: RIVASTIGMINE
     Indication: MEMORY IMPAIRMENT
     Dosage: 4.6 MG, QD (1 PATCH OF 9 MG/5 CM2 PER DAY)
     Route: 062

REACTIONS (8)
  - Diarrhoea [Recovered/Resolved]
  - Decreased appetite [Recovered/Resolved]
  - Drug administration error [Unknown]
  - Malaise [Unknown]
  - Off label use [Unknown]
  - Nausea [Recovered/Resolved]
  - Sluggishness [Recovered/Resolved]
  - Dysentery [Unknown]

NARRATIVE: CASE EVENT DATE: 20150801
